FAERS Safety Report 7340445-3 (Version None)
Quarter: 2011Q1

REPORT INFORMATION
  Report Type: 
  Country: None (occurrence: None)
  Receive Date: 20110228
  Receipt Date: 20110214
  Transmission Date: 20110831
  Serious: Yes (Other)
  Sender: FDA-Public Use
  Company Number: 11-067

PATIENT
  Sex: Female

DRUGS (1)
  1. ERGOCALCIFEROL [Suspect]

REACTIONS (2)
  - DERMATITIS CONTACT [None]
  - SWELLING FACE [None]
